FAERS Safety Report 16022791 (Version 1)
Quarter: 2019Q1

REPORT INFORMATION
  Report Type: Spontaneous
  Country: US (occurrence: US)
  Receive Date: 20190301
  Receipt Date: 20190301
  Transmission Date: 20190418
  Serious: No
  Sender: FDA-Public Use
  Company Number: US-BAYER-2019-043576

PATIENT
  Sex: Female

DRUGS (1)
  1. MIRALAX [Suspect]
     Active Substance: POLYETHYLENE GLYCOL 3350
     Indication: COLONOSCOPY
     Dosage: UNK, MIX 238G OF POWDER IN 4OZ OF GATORADE
     Route: 048

REACTIONS (3)
  - Incorrect dosage administered [Unknown]
  - Product use in unapproved indication [Unknown]
  - Off label use [Unknown]
